FAERS Safety Report 9455246 (Version 2)
Quarter: 2013Q3

REPORT INFORMATION
  Report Type: Spontaneous
  Country: US (occurrence: US)
  Receive Date: 20130813
  Receipt Date: 20130827
  Transmission Date: 20140515
  Serious: Yes (Death, Hospitalization, Disabling)
  Sender: FDA-Public Use
  Company Number: US-MERCK-1308USA003302

PATIENT
  Sex: Female

DRUGS (11)
  1. JANUVIA [Suspect]
     Dosage: 100 MG, QD
     Route: 048
     Dates: start: 201301
  2. ZOSTAVAX [Suspect]
     Indication: PROPHYLAXIS
     Dosage: .65 ML
     Route: 058
     Dates: start: 20130529, end: 20130529
  3. COREG [Concomitant]
  4. NAPROXEN [Concomitant]
  5. ASPIRIN [Concomitant]
  6. CLONIDINE [Concomitant]
  7. FAMOTIDINE [Concomitant]
  8. EXFORGE [Concomitant]
  9. BYSTOLIC [Concomitant]
  10. NOVOLOG [Concomitant]
  11. LIPITOR [Concomitant]

REACTIONS (3)
  - Hypertensive heart disease [Fatal]
  - Coronary artery disease [Fatal]
  - Diabetes mellitus [Fatal]
